FAERS Safety Report 25768057 (Version 1)
Quarter: 2025Q3

REPORT INFORMATION
  Report Type: Spontaneous
  Country: US (occurrence: US)
  Receive Date: 20250905
  Receipt Date: 20250905
  Transmission Date: 20251020
  Serious: No
  Sender: DOMPE FARMACEUTICI
  Company Number: US-FARMAPROD-202505-1739

PATIENT
  Age: 77 Year
  Sex: Female

DRUGS (3)
  1. OXERVATE [Suspect]
     Active Substance: CENEGERMIN-BKBJ
     Indication: Herpes ophthalmic
     Route: 047
     Dates: start: 20250520
  2. NEPAFENAC;PREDNISOLONE [Concomitant]
  3. AMLODIPINE BESYLATE [Concomitant]
     Active Substance: AMLODIPINE BESYLATE

REACTIONS (5)
  - Eye pain [Unknown]
  - Off label use [Unknown]
  - Eye irritation [Unknown]
  - Ocular hyperaemia [Unknown]
  - Malaise [Unknown]

NARRATIVE: CASE EVENT DATE: 20250520
